FAERS Safety Report 9927903 (Version 2)
Quarter: 2014Q1

REPORT INFORMATION
  Report Type: Spontaneous
  Country: US (occurrence: US)
  Receive Date: 20140227
  Receipt Date: 20140319
  Transmission Date: 20141002
  Serious: No
  Sender: FDA-Public Use
  Company Number: US-PFIZER INC-2014055503

PATIENT
  Age: 67 Year
  Sex: Female
  Weight: 73 kg

DRUGS (2)
  1. PRISTIQ [Suspect]
     Indication: DEPRESSION
     Dosage: 50 MG, DAILY
     Dates: start: 201307
  2. TEMAZEPAM [Concomitant]
     Indication: ANXIETY
     Dosage: 7.5 MG, DAILY AT NIGHT

REACTIONS (1)
  - Somnolence [Recovered/Resolved]
